FAERS Safety Report 16790725 (Version 1)
Quarter: 2019Q3

REPORT INFORMATION
  Report Type: Report from Study
  Country: CN (occurrence: CN)
  Receive Date: 20190910
  Receipt Date: 20190910
  Transmission Date: 20191005
  Serious: Yes (Other)
  Sender: FDA-Public Use
  Company Number: CN-ROCHE-2398566

PATIENT

DRUGS (20)
  1. RANIBIZUMAB. [Suspect]
     Active Substance: RANIBIZUMAB
     Indication: AUTOIMMUNE DISORDER
     Route: 065
  2. PANITUMUMAB [Suspect]
     Active Substance: PANITUMUMAB
     Indication: AUTOIMMUNE DISORDER
     Route: 065
  3. PANITUMUMAB [Suspect]
     Active Substance: PANITUMUMAB
     Indication: METASTATIC NEOPLASM
  4. ADALIMUMAB [Suspect]
     Active Substance: ADALIMUMAB
     Indication: AUTOIMMUNE DISORDER
     Route: 065
  5. TOCILIZUMAB. [Suspect]
     Active Substance: TOCILIZUMAB
     Indication: AUTOIMMUNE DISORDER
     Route: 065
  6. ETANERCEPT [Suspect]
     Active Substance: ETANERCEPT
     Indication: AUTOIMMUNE DISORDER
     Route: 065
  7. TRASTUZUMAB. [Suspect]
     Active Substance: TRASTUZUMAB
     Indication: METASTATIC NEOPLASM
  8. BASILIXIMAB [Suspect]
     Active Substance: BASILIXIMAB
     Indication: AUTOIMMUNE DISORDER
     Route: 065
  9. BEVACIZUMAB. [Suspect]
     Active Substance: BEVACIZUMAB
     Indication: AUTOIMMUNE DISORDER
     Route: 065
  10. INFLIXIMAB [Suspect]
     Active Substance: INFLIXIMAB
     Indication: AUTOIMMUNE DISORDER
     Route: 065
  11. TRASTUZUMAB. [Suspect]
     Active Substance: TRASTUZUMAB
     Indication: AUTOIMMUNE DISORDER
     Route: 065
  12. PALIVIZUMAB [Suspect]
     Active Substance: PALIVIZUMAB
     Indication: AUTOIMMUNE DISORDER
     Route: 065
  13. ANTITHYMOCYTE IMMUNOGLOBULIN [Suspect]
     Active Substance: THYMOCYTE IMMUNE GLOBULIN NOS
     Indication: AUTOIMMUNE DISORDER
     Route: 065
  14. USTEKINUMAB [Suspect]
     Active Substance: USTEKINUMAB
     Indication: AUTOIMMUNE DISORDER
     Route: 065
  15. GOLIMUMAB [Suspect]
     Active Substance: GOLIMUMAB
     Indication: AUTOIMMUNE DISORDER
     Route: 065
  16. AFLIBERCEPT [Suspect]
     Active Substance: AFLIBERCEPT
     Indication: METASTATIC NEOPLASM
  17. RITUXIMAB. [Suspect]
     Active Substance: RITUXIMAB
     Indication: AUTOIMMUNE DISORDER
     Route: 065
  18. BEVACIZUMAB. [Suspect]
     Active Substance: BEVACIZUMAB
     Indication: METASTATIC NEOPLASM
  19. DENOSUMAB [Suspect]
     Active Substance: DENOSUMAB
     Indication: AUTOIMMUNE DISORDER
     Route: 065
  20. AFLIBERCEPT [Suspect]
     Active Substance: AFLIBERCEPT
     Indication: AUTOIMMUNE DISORDER
     Route: 065

REACTIONS (2)
  - Herpes zoster [Unknown]
  - Tuberculosis [Unknown]
